FAERS Safety Report 8019107-5 (Version None)
Quarter: 2012Q1

REPORT INFORMATION
  Report Type: 
  Country: None (occurrence: None)
  Receive Date: 20120103
  Receipt Date: 20111223
  Transmission Date: 20120608
  Serious: Yes (Other)
  Sender: FDA-Public Use
  Company Number: US-BAYER-2011-123711

PATIENT
  Age: 48 Year
  Sex: Female
  Weight: 63 kg

DRUGS (1)
  1. CAMPHO-PHENIQUE ANTISEPTIC COLD SORE GEL WITH DA [Suspect]
     Indication: ORAL HERPES
     Route: 061

REACTIONS (4)
  - ORAL MUCOSAL ERYTHEMA [None]
  - OROPHARYNGEAL BLISTERING [None]
  - RASH [None]
  - ORAL HERPES [None]
